FAERS Safety Report 24132346 (Version 2)
Quarter: 2024Q3

REPORT INFORMATION
  Report Type: Spontaneous
  Country: US (occurrence: US)
  Receive Date: 20240724
  Receipt Date: 20240802
  Transmission Date: 20241017
  Serious: No
  Sender: ROCHE
  Company Number: US-ROCHE-10000033188

PATIENT
  Age: 79 Year
  Sex: Female

DRUGS (1)
  1. PIRFENIDONE [Suspect]
     Active Substance: PIRFENIDONE
     Indication: Product used for unknown indication
     Dosage: 3 TABLETS THREE TIMES DAILY AND SHE BUMPED BACK DOWN TO THE 2 TABLETS THREE TIMES DAILY DOSAGE.
     Route: 048

REACTIONS (6)
  - Nausea [Unknown]
  - Dizziness [Unknown]
  - Fatigue [Unknown]
  - Initial insomnia [Unknown]
  - Nasal congestion [Unknown]
  - Drainage [Unknown]
